FAERS Safety Report 12261647 (Version 1)
Quarter: 2016Q2

REPORT INFORMATION
  Report Type: Other
  Country: IN (occurrence: IN)
  Receive Date: 20160413
  Receipt Date: 20160413
  Transmission Date: 20160815
  Serious: Yes (Hospitalization)
  Sender: FDA-Public Use
  Company Number: IN-LUPIN PHARMACEUTICALS INC.-2016-01327

PATIENT
  Age: 54 Year
  Sex: Female

DRUGS (2)
  1. PARACETEMOL [Concomitant]
     Indication: BACK PAIN
     Route: 065
  2. DICLOFENAC [Suspect]
     Active Substance: DICLOFENAC
     Indication: BACK PAIN
     Route: 065

REACTIONS (1)
  - Acute kidney injury [Recovering/Resolving]
